FAERS Safety Report 15475455 (Version 1)
Quarter: 2018Q4

REPORT INFORMATION
  Report Type: Report from Study
  Country: US (occurrence: US)
  Receive Date: 20181008
  Receipt Date: 20181008
  Transmission Date: 20190205
  Serious: Yes (Other)
  Sender: FDA-Public Use
  Company Number: US-ACTELION-A-NJ2018-178274

PATIENT
  Age: 69 Year
  Sex: Female

DRUGS (15)
  1. CORDARONE [Concomitant]
     Active Substance: AMIODARONE HYDROCHLORIDE
  2. CALTRATE [Concomitant]
     Active Substance: CALCIUM CARBONATE
  3. FOSAMAX [Concomitant]
     Active Substance: ALENDRONATE SODIUM
  4. ZOCOR [Concomitant]
     Active Substance: SIMVASTATIN
  5. DIGOXIN. [Concomitant]
     Active Substance: DIGOXIN
  6. PRILOSEC [Concomitant]
     Active Substance: OMEPRAZOLE MAGNESIUM
  7. OPSUMIT [Suspect]
     Active Substance: MACITENTAN
     Indication: PULMONARY HYPERTENSION
     Dosage: 10 MG, QD
     Route: 048
     Dates: start: 20150401
  8. IMDUR [Concomitant]
     Active Substance: ISOSORBIDE MONONITRATE
  9. LATANOPROST. [Concomitant]
     Active Substance: LATANOPROST
  10. LIPITOR [Concomitant]
     Active Substance: ATORVASTATIN CALCIUM
  11. COREG [Concomitant]
     Active Substance: CARVEDILOL
  12. VASOTEC [Concomitant]
     Active Substance: ENALAPRIL MALEATE
  13. LASIX [Concomitant]
     Active Substance: FUROSEMIDE
     Dosage: UNK
  14. ALDACTONE [Concomitant]
     Active Substance: SPIRONOLACTONE
  15. COUMADIN [Concomitant]
     Active Substance: WARFARIN SODIUM

REACTIONS (5)
  - Head injury [Recovering/Resolving]
  - Back injury [Unknown]
  - Cardiac pacemaker replacement [Unknown]
  - Fall [Unknown]
  - Skin laceration [Recovering/Resolving]

NARRATIVE: CASE EVENT DATE: 20180825
